FAERS Safety Report 7406182-1 (Version None)
Quarter: 2011Q2

REPORT INFORMATION
  Report Type: 
  Country: None (occurrence: None)
  Receive Date: 20110401
  Receipt Date: 20110324
  Transmission Date: 20111010
  Serious: Yes (Death)
  Sender: FDA-Public Use
  Company Number: UTC-005353

PATIENT
  Age: 65 Year
  Sex: Female
  Weight: 72.72 kg

DRUGS (5)
  1. COUMADIN [Concomitant]
  2. DIURETICS (DIURETICS) [Concomitant]
  3. LETAIRIS [Concomitant]
  4. REMODULIN [Suspect]
     Dosage: 66.24 UG/KG (0.046 UG/KG,1 IN 1 MIN),INTRAVENOUS
     Route: 042
     Dates: start: 20100913
  5. CARDIZEM [Concomitant]

REACTIONS (1)
  - DEATH [None]
